FAERS Safety Report 13964558 (Version 2)
Quarter: 2017Q4

REPORT INFORMATION
  Report Type: Spontaneous
  Country: RS (occurrence: RS)
  Receive Date: 20170913
  Receipt Date: 20171006
  Transmission Date: 20180320
  Serious: Yes (Death, Hospitalization, Other)
  Sender: FDA-Public Use
  Company Number: RS-IMPAX LABORATORIES, INC-2017-IPXL-02654

PATIENT
  Age: 47 Year
  Sex: Female

DRUGS (1)
  1. DIVALPROEX SODIUM ER [Suspect]
     Active Substance: DIVALPROEX SODIUM
     Indication: PRODUCT USED FOR UNKNOWN INDICATION
     Dosage: UNK
     Route: 065

REACTIONS (6)
  - Parathyroid tumour benign [Not Recovered/Not Resolved]
  - Hyperparathyroidism [Unknown]
  - Uterine leiomyoma [Unknown]
  - Systemic inflammatory response syndrome [Fatal]
  - Pancreatitis relapsing [Unknown]
  - Metrorrhagia [Unknown]
